FAERS Safety Report 24552639 (Version 1)
Quarter: 2024Q4

REPORT INFORMATION
  Report Type: Spontaneous
  Country: US (occurrence: US)
  Receive Date: 20241026
  Receipt Date: 20241026
  Transmission Date: 20250114
  Serious: No
  Sender: SANDOZ
  Company Number: US-SANDOZ-SDZ2024US089858

PATIENT

DRUGS (1)
  1. CIMERLI [Suspect]
     Active Substance: RANIBIZUMAB-EQRN
     Indication: Product use issue
     Dosage: 0.3 MG N/A DOSE EVERY N/A N/A
     Dates: start: 20241024

REACTIONS (1)
  - Product administration error [Unknown]

NARRATIVE: CASE EVENT DATE: 20241024
